FAERS Safety Report 12715327 (Version 1)
Quarter: 2016Q3

REPORT INFORMATION
  Report Type: Spontaneous
  Country: US (occurrence: US)
  Receive Date: 20160906
  Receipt Date: 20160906
  Transmission Date: 20161109
  Serious: No
  Sender: FDA-Public Use
  Company Number: US-ASTRAZENECA-2016SE91872

PATIENT
  Sex: Female
  Weight: 83.9 kg

DRUGS (2)
  1. BLOOD PRESSURE PILLS [Concomitant]
     Active Substance: UNSPECIFIED INGREDIENT
  2. SYMBICORT [Suspect]
     Active Substance: BUDESONIDE\FORMOTEROL FUMARATE DIHYDRATE
     Indication: CHRONIC OBSTRUCTIVE PULMONARY DISEASE
     Dosage: 160/4.5MCG, TWO PUFFS TWICE A DAY
     Route: 055
     Dates: start: 2013

REACTIONS (3)
  - Intentional product misuse [Unknown]
  - Product quality issue [Unknown]
  - Dyspnoea [Unknown]
